FAERS Safety Report 9424172 (Version 2)
Quarter: 2013Q3

REPORT INFORMATION
  Report Type: Spontaneous
  Country: JP (occurrence: JP)
  Receive Date: 20130729
  Receipt Date: 20130815
  Transmission Date: 20140515
  Serious: Yes (Other)
  Sender: FDA-Public Use
  Company Number: PHHY2013JP076470

PATIENT
  Sex: Male

DRUGS (3)
  1. GLIVEC [Suspect]
     Indication: GASTROINTESTINAL STROMAL TUMOUR
     Dosage: 400 MG, DAILY
     Route: 048
     Dates: start: 201203
  2. GLIVEC [Suspect]
     Dosage: 100 MG, DAILY
     Route: 048
     Dates: start: 201307
  3. GLIVEC [Suspect]
     Dosage: 200 MG, DAILY
     Route: 048
     Dates: start: 20130720

REACTIONS (6)
  - Fracture [Recovered/Resolved]
  - Myalgia [Recovered/Resolved]
  - Rash [Recovered/Resolved]
  - Retinal haemorrhage [Not Recovered/Not Resolved]
  - Skin disorder [Unknown]
  - Oedema [Unknown]
